FAERS Safety Report 11445632 (Version 1)
Quarter: 2015Q3

REPORT INFORMATION
  Report Type: Spontaneous
  Country: US (occurrence: None)
  Receive Date: 20150901
  Receipt Date: 20150901
  Transmission Date: 20151125
  Serious: Yes (Disabling)
  Sender: FDA-Public Use
  Company Number: None

PATIENT
  Age: 54 Year
  Sex: Male
  Weight: 108.86 kg

DRUGS (4)
  1. SEROQUEL [Concomitant]
     Active Substance: QUETIAPINE FUMARATE
  2. TRAMDOL HYDROCHLORIDE [Suspect]
     Active Substance: TRAMADOL HYDROCHLORIDE
     Indication: PAIN
     Dosage: TAKEN BY MOUTH
     Dates: start: 20150825, end: 20150830
  3. LORAZEPAM. [Concomitant]
     Active Substance: LORAZEPAM
  4. METOPROLOL [Concomitant]
     Active Substance: METOPROLOL

REACTIONS (7)
  - Chest pain [None]
  - Back pain [None]
  - Asthenia [None]
  - Abdominal pain upper [None]
  - Pain in extremity [None]
  - Headache [None]
  - Pain [None]

NARRATIVE: CASE EVENT DATE: 20150825
